FAERS Safety Report 6213766-5 (Version None)
Quarter: 2009Q2

REPORT INFORMATION
  Report Type: 
  Country: None (occurrence: None)
  Receive Date: 20090602
  Receipt Date: 20090521
  Transmission Date: 20091009
  Serious: Yes (Other)
  Sender: FDA-Public Use
  Company Number: 235781K09USA

PATIENT
  Age: 52 Year
  Sex: Female

DRUGS (6)
  1. REBIF [Suspect]
     Indication: MULTIPLE SCLEROSIS
     Dosage: 44 MCG, 3 IN WEEKS, SUBCUTANEOUS
     Route: 058
     Dates: start: 20081118
  2. CARDIZEM (DILTIAZEM/00489701/) [Concomitant]
  3. ACTOS [Concomitant]
  4. GLIPIZIDE [Concomitant]
  5. PAXIL (PAROXRTINE HYDROCHLORIDE) [Concomitant]
  6. PHENOBARBITAL (PHENOBARBITAL/00023201/) [Concomitant]

REACTIONS (12)
  - ANTICONVULSANT DRUG LEVEL BELOW THERAPEUTIC [None]
  - CONDITION AGGRAVATED [None]
  - CONVULSION [None]
  - HEAD TITUBATION [None]
  - INCONTINENCE [None]
  - INJECTION SITE PAIN [None]
  - INJECTION SITE REACTION [None]
  - LIMB DISCOMFORT [None]
  - MULTIPLE SCLEROSIS [None]
  - NASOPHARYNGITIS [None]
  - PAIN [None]
  - TONGUE BITING [None]
